FAERS Safety Report 12766693 (Version 1)
Quarter: 2016Q3

REPORT INFORMATION
  Report Type: Spontaneous
  Country: US (occurrence: US)
  Receive Date: 20160921
  Receipt Date: 20160921
  Transmission Date: 20161109
  Serious: Yes (Hospitalization)
  Sender: FDA-Public Use
  Company Number: US-PFIZER INC-2016434387

PATIENT
  Age: 85 Year

DRUGS (1)
  1. TIKOSYN [Suspect]
     Active Substance: DOFETILIDE
     Dosage: UNK

REACTIONS (5)
  - Hernia [Unknown]
  - Joint lock [Unknown]
  - Gout [Unknown]
  - Condition aggravated [Unknown]
  - Arthritis [Unknown]
